FAERS Safety Report 10248549 (Version 1)
Quarter: 2014Q2

REPORT INFORMATION
  Report Type: Spontaneous
  Country: MY (occurrence: None)
  Receive Date: 20140618
  Receipt Date: 20140618
  Transmission Date: 20141212
  Serious: Yes (Hospitalization)
  Sender: FDA-Public Use
  Company Number: 2388286

PATIENT
  Age: 35 Year
  Sex: Female

DRUGS (2)
  1. METRONIDAZOLE [Suspect]
     Indication: PELVIC INFLAMMATORY DISEASE
  2. CEFUROXIME [Suspect]
     Indication: PELVIC INFLAMMATORY DISEASE

REACTIONS (9)
  - Acute psychosis [None]
  - Irritability [None]
  - Feeling abnormal [None]
  - Aggression [None]
  - Crying [None]
  - Decreased appetite [None]
  - Feeling guilty [None]
  - Depressed mood [None]
  - Hallucination, auditory [None]
